FAERS Safety Report 7580195-1 (Version None)
Quarter: 2011Q2

REPORT INFORMATION
  Report Type: 
  Country: None (occurrence: None)
  Receive Date: 20110629
  Receipt Date: 20110617
  Transmission Date: 20111010
  Serious: Yes (Other)
  Sender: FDA-Public Use
  Company Number: US-BAYER-2011-053099

PATIENT
  Sex: Female

DRUGS (2)
  1. DROSPIRENONE AND ETHINYL ESTRADIOL [Suspect]
     Dosage: UNK
     Dates: start: 20080501, end: 20090601
  2. YASMIN [Suspect]
     Dosage: UNK
     Dates: start: 20051201, end: 20080501

REACTIONS (8)
  - GALLBLADDER DISORDER [None]
  - INJURY [None]
  - ANXIETY [None]
  - PSYCHIATRIC SYMPTOM [None]
  - GASTROINTESTINAL DISORDER [None]
  - POST CHOLECYSTECTOMY SYNDROME [None]
  - ANHEDONIA [None]
  - PAIN [None]
